FAERS Safety Report 5031461-5 (Version None)
Quarter: 2006Q2

REPORT INFORMATION
  Report Type: 
  Country: None (occurrence: None)
  Receive Date: 20060621
  Receipt Date: 20060523
  Transmission Date: 20061013
  Serious: Yes (Death)
  Sender: FDA-Public Use
  Company Number: BE-BRISTOL-MYERS SQUIBB COMPANY-13388913

PATIENT
  Age: 25 Year
  Sex: Male

DRUGS (4)
  1. ARIPIPRAZOLE [Suspect]
     Indication: SCHIZOPHRENIA
     Route: 048
     Dates: start: 20060313
  2. DEPAKENE [Concomitant]
     Route: 048
  3. RISPERDAL [Concomitant]
     Dosage: DOSAGE: INCREASED TO 4 MG DAILY ON 21-SEP-2001
     Route: 048
     Dates: start: 20010504, end: 20060313
  4. LORMETAZEPAM [Concomitant]
     Route: 048

REACTIONS (1)
  - COMPLETED SUICIDE [None]
